FAERS Safety Report 17568916 (Version 1)
Quarter: 2020Q1

REPORT INFORMATION
  Report Type: Spontaneous
  Country: DE (occurrence: DE)
  Receive Date: 20200321
  Receipt Date: 20200321
  Transmission Date: 20200409
  Serious: Yes (Other)
  Sender: FDA-Public Use
  Company Number: DE-TEVA-2020-DE-1195769

PATIENT
  Age: 42 Year
  Sex: Female
  Weight: 136 kg

DRUGS (2)
  1. CIPROFLOXACIN. [Suspect]
     Active Substance: CIPROFLOXACIN
     Indication: CYSTITIS NONINFECTIVE
     Dosage: DAILY DOSE:2 DOSAGE FORM EVERY  DAYS 2 SEPARATED DOSES
     Route: 048
  2. L-THYROXIN [Concomitant]
     Active Substance: LEVOTHYROXINE SODIUM
     Indication: HYPOTHYROIDISM
     Dosage: 100 MICROGRAM DAILY; DAILY DOSE:100 MICROGRAM(S) EVERY 2 DAYS
     Route: 048

REACTIONS (4)
  - Muscle twitching [Recovered/Resolved]
  - Paraesthesia [Recovered/Resolved]
  - Acute polyneuropathy [Recovered/Resolved]
  - Skin burning sensation [Recovered/Resolved]

NARRATIVE: CASE EVENT DATE: 202001
